FAERS Safety Report 8230005-4 (Version None)
Quarter: 2012Q1

REPORT INFORMATION
  Report Type: 
  Country: None (occurrence: None)
  Receive Date: 20120323
  Receipt Date: 20091221
  Transmission Date: 20120608
  Serious: No
  Sender: FDA-Public Use
  Company Number: 2009BI041826

PATIENT
  Age: 58 Year
  Sex: Female

DRUGS (2)
  1. TYSABRI [Suspect]
     Indication: MULTIPLE SCLEROSIS
     Route: 042
     Dates: start: 20090825, end: 20100209
  2. TYSABRI [Suspect]
     Route: 042
     Dates: start: 20120301

REACTIONS (6)
  - GAIT DISTURBANCE [None]
  - INFLUENZA [None]
  - URTICARIA [None]
  - BALANCE DISORDER [None]
  - PRURITUS [None]
  - FALL [None]
